FAERS Safety Report 16011833 (Version 4)
Quarter: 2020Q2

REPORT INFORMATION
  Report Type: Report from Study
  Country: JP (occurrence: JP)
  Receive Date: 20190227
  Receipt Date: 20200406
  Transmission Date: 20200713
  Serious: Yes (Hospitalization, Other)
  Sender: FDA-Public Use
  Company Number: JP-ACTELION-A-CH2019-186697

PATIENT
  Age: 15 Year
  Sex: Female

DRUGS (13)
  1. AZOSEMIDE [Suspect]
     Active Substance: AZOSEMIDE
     Indication: PORTOPULMONARY HYPERTENSION
     Dosage: 60 MG, QD
     Route: 048
     Dates: start: 20190706
  2. URSODEOXYCHOLIC ACID [Concomitant]
     Active Substance: URSODIOL
  3. MIYA-BM [Concomitant]
     Active Substance: CLOSTRIDIUM BUTYRICUM SPORES STRAIN M-55
  4. UPTRAVI [Suspect]
     Active Substance: SELEXIPAG
     Dosage: 0.6 MG, BID
     Route: 048
  5. JUVELA [Concomitant]
     Active Substance: .ALPHA.-TOCOPHEROL\RETINOL
  6. UPTRAVI [Suspect]
     Active Substance: SELEXIPAG
     Indication: PORTOPULMONARY HYPERTENSION
     Dosage: 0.2 MG, QD
     Route: 048
     Dates: start: 20190313
  7. BERAPROST SODIUM [Suspect]
     Active Substance: BERAPROST SODIUM
     Indication: PORTOPULMONARY HYPERTENSION
     Dosage: 20 MCG, TID
     Route: 048
     Dates: start: 20181112, end: 20190312
  8. PIARLE [Concomitant]
     Active Substance: LACTULOSE
  9. LIVACT [Concomitant]
     Active Substance: AMINO ACIDS, SOURCE UNSPECIFIED
  10. GLAKAY [Concomitant]
     Active Substance: MENATETRENONE
  11. SAWACILLIN [Concomitant]
     Active Substance: AMOXICILLIN
  12. OPSUMIT [Suspect]
     Active Substance: MACITENTAN
     Indication: PORTOPULMONARY HYPERTENSION
     Dosage: 10 MG, QD
     Route: 048
     Dates: start: 20181115, end: 20190706
  13. ZINC. [Concomitant]
     Active Substance: ZINC

REACTIONS (11)
  - Flushing [Recovering/Resolving]
  - Portopulmonary hypertension [Recovering/Resolving]
  - Condition aggravated [Recovering/Resolving]
  - Fluid retention [Recovering/Resolving]
  - Blood pressure increased [Recovering/Resolving]
  - Pancytopenia [Not Recovered/Not Resolved]
  - Pulmonary hypertension [Recovering/Resolving]
  - Hypokalaemia [Unknown]
  - Pulmonary arterial pressure increased [Recovering/Resolving]
  - Liver transplant [Unknown]
  - Headache [Recovering/Resolving]

NARRATIVE: CASE EVENT DATE: 20181115
